FAERS Safety Report 7945672-X (Version None)
Quarter: 2011Q4

REPORT INFORMATION
  Report Type: 
  Country: None (occurrence: None)
  Receive Date: 20111129
  Receipt Date: 20111121
  Transmission Date: 20120403
  Serious: Yes (Death, Hospitalization)
  Sender: FDA-Public Use
  Company Number: NL-CELGENEUS-114-21880-11100336

PATIENT
  Sex: Female
  Weight: 72 kg

DRUGS (14)
  1. REVLIMID [Suspect]
     Indication: MULTIPLE MYELOMA
     Dosage: 25 MILLIGRAM
     Route: 048
     Dates: start: 20110908, end: 20110928
  2. DEXAMETHASONE [Suspect]
     Indication: MULTIPLE MYELOMA
     Route: 048
     Dates: start: 20110908, end: 20110928
  3. THYRAX [Concomitant]
     Dosage: 25 MICROGRAM
     Route: 048
     Dates: start: 20110929
  4. OXAZEPAM [Concomitant]
     Route: 048
     Dates: start: 20111002
  5. SERETID [Concomitant]
     Dosage: 250/50 UG
     Route: 055
     Dates: start: 20110929
  6. REVLIMID [Suspect]
     Dosage: 25 MILLIGRAM
     Route: 048
     Dates: end: 20111005
  7. DEXAMETHASONE [Suspect]
     Dosage: 5.3333 MILLIGRAM
     Route: 065
     Dates: end: 20111009
  8. PANTOPRAZOLE [Concomitant]
     Dosage: 40 MILLIGRAM
     Route: 048
     Dates: start: 20110929, end: 20110930
  9. PANTOPRAZOLE [Concomitant]
     Dosage: 40 MILLIGRAM
     Route: 041
     Dates: start: 20110930
  10. TRIAMCINOLONE [Concomitant]
     Dosage: 1 DOSAGE FORMS
     Route: 003
     Dates: start: 20110930
  11. FOLIC ACID [Concomitant]
     Dosage: 5 MILLIGRAM
     Route: 048
     Dates: start: 20110929
  12. PRIMPERAN TAB [Concomitant]
     Route: 041
     Dates: start: 20110930
  13. PRIMPERAN TAB [Concomitant]
     Route: 041
     Dates: start: 20110929, end: 20110930
  14. ASPIRIN [Concomitant]
     Route: 048
     Dates: start: 20110929

REACTIONS (2)
  - DIARRHOEA [None]
  - ABDOMINAL SEPSIS [None]
